FAERS Safety Report 13800356 (Version 1)
Quarter: 2017Q3

REPORT INFORMATION
  Report Type: Spontaneous
  Country: US (occurrence: US)
  Receive Date: 20170727
  Receipt Date: 20170727
  Transmission Date: 20171127
  Serious: Yes (Other)
  Sender: FDA-Public Use
  Company Number: US-GLAXOSMITHKLINE-US2017115179

PATIENT
  Sex: Female

DRUGS (1)
  1. BIOTENE GENTLE MINT (SODIUM FLUORIDE) [Suspect]
     Active Substance: SODIUM FLUORIDE
     Indication: DENTAL CLEANING
     Dosage: UNK

REACTIONS (7)
  - Oral discomfort [Unknown]
  - Sjogren^s syndrome [Unknown]
  - Condition aggravated [Unknown]
  - Glossodynia [Unknown]
  - Tongue discomfort [Unknown]
  - Glossitis [Unknown]
  - Tongue erythema [Unknown]
